FAERS Safety Report 14257236 (Version 3)
Quarter: 2018Q2

REPORT INFORMATION
  Report Type: Report from Study
  Country: None (occurrence: CH)
  Receive Date: 20171206
  Receipt Date: 20180417
  Transmission Date: 20180711
  Serious: Yes (Hospitalization, Other)
  Sender: FDA-Public Use
  Company Number: CH-ABBVIE-17K-151-2154328-00

PATIENT
  Age: 61 Year
  Sex: Female

DRUGS (7)
  1. FRAGMIN [Concomitant]
     Active Substance: DALTEPARIN SODIUM
     Indication: PRODUCT USED FOR UNKNOWN INDICATION
     Route: 058
  2. DUODOPA [Suspect]
     Active Substance: CARBIDOPA\LEVODOPA
     Dosage: 24H THERAPY, MD: 4ML CRD: 3.8ML/H CRN: 1.5ML/H ED: 1.5ML
     Route: 050
     Dates: start: 20170206, end: 2017
  3. XARELTO [Concomitant]
     Active Substance: RIVAROXABAN
     Indication: THROMBOSIS PROPHYLAXIS
     Dosage: POST OPERATIVELY
  4. DUODOPA [Suspect]
     Active Substance: CARBIDOPA\LEVODOPA
     Indication: PARKINSON^S DISEASE
     Dosage: MORNING DOSE 4.0ML?CRD 3.7ML/H?CONTINUOUS RATE NIGHT 1.5ML/H?24H THERAPY?EXTRA DOSE 1.5ML
     Route: 045
     Dates: start: 20170201, end: 201702
  5. ASPIRIN. [Concomitant]
     Active Substance: ASPIRIN
     Indication: PRODUCT USED FOR UNKNOWN INDICATION
  6. DUODOPA [Suspect]
     Active Substance: CARBIDOPA\LEVODOPA
     Dosage: 24H THERAPY, MD: 4ML, CRD: 3.6ML/H, CND: 1.5ML/H, EXTRA DOSE: 1.5ML
     Route: 050
     Dates: start: 2017
  7. ELIQUIS [Concomitant]
     Active Substance: APIXABAN
     Indication: PRODUCT USED FOR UNKNOWN INDICATION
     Dosage: REDUCED DOSE DUE TO RISK OF FALLING AND BLEEDING,PAUSED BEFORE SURGERY OF FEMUR FRACTURE
     Dates: end: 20170905

REACTIONS (29)
  - Femur fracture [Unknown]
  - Road traffic accident [Unknown]
  - Mitral valve incompetence [Unknown]
  - Cardiac disorder [Unknown]
  - Apraxia [Unknown]
  - Blood alkaline phosphatase increased [Unknown]
  - Ejection fraction abnormal [Unknown]
  - Muscle spasms [Unknown]
  - Attention deficit/hyperactivity disorder [Unknown]
  - Tremor [Unknown]
  - Fall [Unknown]
  - Dyskinesia [Unknown]
  - Cardiac aneurysm [Unknown]
  - Atrial fibrillation [Unknown]
  - Complement factor C3 decreased [Unknown]
  - Streptococcal infection [Unknown]
  - Pain [Unknown]
  - Stoma site hypergranulation [Not Recovered/Not Resolved]
  - On and off phenomenon [Unknown]
  - Chills [Unknown]
  - Psychomotor retardation [Unknown]
  - Stoma site discharge [Unknown]
  - Cognitive disorder [Unknown]
  - Dyspnoea exertional [Unknown]
  - Anaemia postoperative [Unknown]
  - Freezing phenomenon [Unknown]
  - Hyperintensity in brain deep nuclei [Unknown]
  - Antiphospholipid antibodies positive [Unknown]
  - Hypokinesia [Unknown]

NARRATIVE: CASE EVENT DATE: 2017
